FAERS Safety Report 4776830-3 (Version None)
Quarter: 2005Q3

REPORT INFORMATION
  Report Type: 
  Country: None (occurrence: None)
  Receive Date: 20050914
  Receipt Date: 20040910
  Transmission Date: 20060218
  Serious: Yes (Hospitalization)
  Sender: FDA-Public Use
  Company Number: 163-20785-04090253

PATIENT
  Age: 56 Year
  Sex: Female

DRUGS (7)
  1. THALOMID [Suspect]
     Indication: MULTIPLE MYELOMA
     Dosage: 50 MG, QHS, ORAL
     Route: 048
     Dates: start: 20040721, end: 20041011
  2. DEXAMETHASONE [Suspect]
     Indication: MULTIPLE MYELOMA
     Dosage: 40 MG, DAYS1-4, 9-12, 17-20, ORAL
     Route: 048
     Dates: start: 20040721, end: 20041011
  3. ZOMETA [Suspect]
     Indication: MULTIPLE MYELOMA
     Dosage: 4 MG, MONTHLY, INTRAVENOUS
     Route: 042
     Dates: start: 20040721, end: 20040918
  4. COUMADIN (WARFARIN SODIUM) (UNKNOWN) [Concomitant]
  5. PROTONIX (PANTOPRAZOLE) (UNKNOWN) [Concomitant]
  6. LEVAQUIN (LEVOFLOXACIN) (UNKNOWN) [Concomitant]
  7. ZOMETA [Concomitant]

REACTIONS (13)
  - BACK PAIN [None]
  - CHEST PAIN [None]
  - CHILLS [None]
  - DISEASE PROGRESSION [None]
  - DYSPNOEA [None]
  - HAEMOGLOBIN DECREASED [None]
  - HYPERCALCAEMIA [None]
  - HYPOKALAEMIA [None]
  - PAIN IN EXTREMITY [None]
  - PLASMACYTOMA [None]
  - PNEUMONIA [None]
  - PYREXIA [None]
  - TREMOR [None]
